FAERS Safety Report 9702385 (Version 1)
Quarter: 2013Q4

REPORT INFORMATION
  Report Type: Spontaneous
  Country: IT (occurrence: IT)
  Receive Date: 20131121
  Receipt Date: 20131121
  Transmission Date: 20140711
  Serious: Yes (Hospitalization)
  Sender: FDA-Public Use
  Company Number: IT-MYLANLABS-2013S1025588

PATIENT
  Age: 46 Year
  Sex: Female

DRUGS (7)
  1. MIRTAZAPINE [Suspect]
     Indication: ANGER
     Route: 048
     Dates: start: 20131029, end: 20131029
  2. FRONTAL [Suspect]
     Indication: ANGER
     Route: 048
     Dates: start: 20131029, end: 20131029
  3. STILNOX [Suspect]
     Indication: ANGER
     Route: 048
     Dates: start: 20131029, end: 20131029
  4. SONIREM [Suspect]
     Indication: ANGER
     Route: 048
     Dates: start: 20131029, end: 20131029
  5. ZOLOFT [Suspect]
     Indication: ANGER
     Route: 048
     Dates: start: 20131029, end: 20131029
  6. TRITTICO [Suspect]
     Indication: ANGER
     Route: 048
     Dates: start: 20131029, end: 20131029
  7. RANIBEN [Concomitant]
     Indication: PRODUCT USED FOR UNKNOWN INDICATION

REACTIONS (2)
  - Drug abuse [Recovered/Resolved]
  - Sopor [Recovered/Resolved]
